FAERS Safety Report 7742856-0 (Version None)
Quarter: 2011Q3

REPORT INFORMATION
  Report Type: 
  Country: None (occurrence: None)
  Receive Date: 20110906
  Receipt Date: 20110830
  Transmission Date: 20111222
  Serious: Yes (Other)
  Sender: FDA-Public Use
  Company Number: 2011SP040841

PATIENT
  Sex: Male

DRUGS (2)
  1. REMERON [Suspect]
     Indication: PRODUCT USED FOR UNKNOWN INDICATION
     Dosage: 15 MG ; 30 MG;QD
     Dates: start: 20050101
  2. REMERON [Suspect]
     Indication: PRODUCT USED FOR UNKNOWN INDICATION
     Dosage: 15 MG ; 30 MG;QD
     Dates: start: 20050101

REACTIONS (1)
  - EPILEPSY [None]
